APPROVED DRUG PRODUCT: CLINDAMYCIN PHOSPHATE AND BENZOYL PEROXIDE
Active Ingredient: BENZOYL PEROXIDE; CLINDAMYCIN PHOSPHATE
Strength: 3.75%;EQ 1.2% BASE
Dosage Form/Route: GEL;TOPICAL
Application: A209610 | Product #001 | TE Code: AB
Applicant: PADAGIS ISRAEL PHARMACEUTICALS LTD
Approved: Aug 20, 2024 | RLD: No | RS: No | Type: RX